FAERS Safety Report 6868702-5 (Version None)
Quarter: 2010Q3

REPORT INFORMATION
  Report Type: 
  Country: None (occurrence: None)
  Receive Date: 20100722
  Receipt Date: 20080612
  Transmission Date: 20110219
  Serious: No
  Sender: FDA-Public Use
  Company Number: US-PFIZER INC-2008051432

PATIENT
  Sex: Female

DRUGS (3)
  1. CHANTIX [Suspect]
  2. CRESTOR [Concomitant]
  3. METFORMIN [Concomitant]

REACTIONS (1)
  - YELLOW SKIN [None]
